FAERS Safety Report 13388064 (Version 1)
Quarter: 2017Q1

REPORT INFORMATION
  Report Type: Spontaneous
  Country: US (occurrence: US)
  Receive Date: 20170330
  Receipt Date: 20170330
  Transmission Date: 20170429
  Serious: Yes (Death)
  Sender: FDA-Public Use
  Company Number: US-BRACCO-013802

PATIENT
  Age: 88 Year
  Sex: Male

DRUGS (1)
  1. GASTROGRAFIN [Suspect]
     Active Substance: DIATRIZOATE MEGLUMINE\DIATRIZOATE SODIUM
     Indication: X-RAY WITH CONTRAST UPPER GASTROINTESTINAL TRACT
     Route: 048
     Dates: start: 20160411, end: 20160411

REACTIONS (5)
  - Aspiration [Fatal]
  - Pulmonary oedema [Fatal]
  - Cardio-respiratory arrest [Fatal]
  - Overdose [Unknown]
  - Aspiration [Unknown]

NARRATIVE: CASE EVENT DATE: 20160411
